FAERS Safety Report 25286447 (Version 2)
Quarter: 2025Q2

REPORT INFORMATION
  Report Type: Report from Study
  Country: US (occurrence: US)
  Receive Date: 20250509
  Receipt Date: 20250612
  Transmission Date: 20250716
  Serious: No
  Sender: SUNOVION
  Company Number: US-SMPA-2025SPA004667AA

PATIENT

DRUGS (10)
  1. ORGOVYX [Suspect]
     Active Substance: RELUGOLIX
     Indication: Prostate cancer
     Dosage: 360 MG, SINGLE
     Route: 048
     Dates: start: 20250324, end: 20250324
  2. ORGOVYX [Suspect]
     Active Substance: RELUGOLIX
     Dosage: 120 MG, QD
     Route: 048
     Dates: start: 20250325
  3. VITAMIN C [Concomitant]
     Active Substance: ASCORBIC ACID
     Route: 048
  4. FINASTERIDE [Concomitant]
     Active Substance: FINASTERIDE
     Route: 048
  5. METHYLENE BLUE [Concomitant]
     Active Substance: METHYLENE BLUE
     Route: 042
  6. Turmeric extra strenght [Concomitant]
     Route: 048
  7. ZINC [Concomitant]
     Active Substance: ZINC
     Route: 065
  8. LACTOFERRIN [Concomitant]
     Active Substance: LACTOFERRIN
     Route: 065
  9. SELENIUM [Concomitant]
     Active Substance: SELENIUM
     Route: 065
  10. SODIUM BICARBONATE [Concomitant]
     Active Substance: SODIUM BICARBONATE
     Route: 065

REACTIONS (2)
  - Hot flush [Unknown]
  - Therapeutic response unexpected [Unknown]
